FAERS Safety Report 6015079-3 (Version None)
Quarter: 2008Q4

REPORT INFORMATION
  Report Type: 
  Country: None (occurrence: None)
  Receive Date: 20081222
  Receipt Date: 20081209
  Transmission Date: 20090506
  Serious: Yes (Hospitalization)
  Sender: FDA-Public Use
  Company Number: JP-JNJFOC-20080300264

PATIENT
  Sex: Male
  Weight: 64 kg

DRUGS (41)
  1. REMICADE [Suspect]
     Route: 042
  2. REMICADE [Suspect]
     Route: 042
  3. REMICADE [Suspect]
     Route: 042
  4. REMICADE [Suspect]
     Route: 042
  5. REMICADE [Suspect]
     Route: 042
  6. REMICADE [Suspect]
     Route: 042
  7. REMICADE [Suspect]
     Route: 042
  8. REMICADE [Suspect]
     Route: 042
  9. REMICADE [Suspect]
     Route: 042
  10. REMICADE [Suspect]
     Route: 042
  11. REMICADE [Suspect]
     Route: 042
  12. REMICADE [Suspect]
     Route: 042
  13. REMICADE [Suspect]
     Route: 042
  14. REMICADE [Suspect]
     Route: 042
  15. REMICADE [Suspect]
     Route: 042
  16. REMICADE [Suspect]
     Route: 042
  17. REMICADE [Suspect]
     Indication: CROHN'S DISEASE
     Route: 042
  18. IMURAN [Suspect]
     Indication: CROHN'S DISEASE
     Route: 048
  19. LEUKERIN [Suspect]
     Indication: CROHN'S DISEASE
     Route: 048
  20. PENTASA [Concomitant]
     Indication: CROHN'S DISEASE
     Route: 048
  21. PREDNISOLONE [Concomitant]
     Indication: CROHN'S DISEASE
     Route: 048
  22. LOXONIN [Concomitant]
     Indication: HEADACHE
     Route: 050
  23. LEPETAN [Concomitant]
     Route: 042
  24. LEPETAN [Concomitant]
     Route: 042
  25. LEPETAN [Concomitant]
     Indication: CROHN'S DISEASE
     Route: 042
  26. FAMOTIDINE [Concomitant]
     Route: 048
  27. HYDROCORTISONE 10MG TAB [Concomitant]
     Route: 042
  28. TALION [Concomitant]
     Route: 048
  29. SLOW-K [Concomitant]
     Indication: HYPOKALAEMIA
     Route: 048
  30. LOPEMIN [Concomitant]
     Indication: DIARRHOEA
     Route: 048
  31. BENZALIN [Concomitant]
     Indication: INSOMNIA
     Route: 048
  32. LEXOTAN [Concomitant]
     Indication: INSOMNIA
     Route: 048
  33. LEVOMEPROMAZINE [Concomitant]
     Indication: ANXIETY
     Route: 048
  34. LEVOMEPROMAZINE [Concomitant]
     Indication: INSOMNIA
     Route: 048
  35. ALESION [Concomitant]
     Indication: PRURITUS
     Route: 048
  36. PRIMPERAN TAB [Concomitant]
     Route: 048
  37. PRIMPERAN TAB [Concomitant]
     Indication: NAUSEA
     Route: 048
  38. COTRIM [Concomitant]
     Indication: INFECTION PROPHYLAXIS
     Route: 048
  39. FULCALIQ [Concomitant]
  40. FULCALIQ [Concomitant]
     Indication: MALNUTRITION
  41. INTRALIPID 10% [Concomitant]
     Indication: MALNUTRITION

REACTIONS (3)
  - ACINETOBACTER INFECTION [None]
  - PNEUMONIA PRIMARY ATYPICAL [None]
  - STAPHYLOCOCCAL SEPSIS [None]
